FAERS Safety Report 4636732-X (Version None)
Quarter: 2005Q2

REPORT INFORMATION
  Report Type: 
  Country: None (occurrence: None)
  Receive Date: 20050414
  Receipt Date: 20050321
  Transmission Date: 20051028
  Serious: Yes (Other)
  Sender: FDA-Public Use
  Company Number: 200414392BCC

PATIENT
  Age: 1 Day

DRUGS (1)
  1. ASPIRIN [Suspect]
     Indication: PREGNANCY INDUCED HYPERTENSION
     Dosage: 81 MG, QD, TRANSPLACENTAL
     Route: 064
     Dates: start: 19910601, end: 19911201

REACTIONS (2)
  - DRUG EXPOSURE DURING PREGNANCY [None]
  - JAUNDICE NEONATAL [None]
